FAERS Safety Report 9592840 (Version 1)
Quarter: 2013Q4

REPORT INFORMATION
  Report Type: Spontaneous
  Country: FR (occurrence: FR)
  Receive Date: 20131004
  Receipt Date: 20131004
  Transmission Date: 20140711
  Serious: Yes (Other)
  Sender: FDA-Public Use
  Company Number: FR-ASTRAZENECA-2013SE72828

PATIENT
  Age: 8724 Day
  Sex: Female

DRUGS (7)
  1. XEROQUEL [Suspect]
     Indication: BIPOLAR I DISORDER
     Route: 048
     Dates: start: 201201, end: 20130906
  2. XEROQUEL [Suspect]
     Indication: BIPOLAR I DISORDER
     Route: 048
     Dates: start: 20130907, end: 201309
  3. XEROQUEL [Suspect]
     Indication: BIPOLAR I DISORDER
     Route: 048
     Dates: start: 201309
  4. ANAFRANIL [Suspect]
  5. TERCIAN [Concomitant]
  6. LYRICA [Concomitant]
  7. TRANXENE [Concomitant]

REACTIONS (3)
  - Exposure during pregnancy [Recovered/Resolved]
  - Abortion spontaneous [Recovered/Resolved]
  - Anxiety [Unknown]
